FAERS Safety Report 13967756 (Version 1)
Quarter: 2017Q3

REPORT INFORMATION
  Report Type: Spontaneous
  Country: US (occurrence: US)
  Receive Date: 20170914
  Receipt Date: 20170914
  Transmission Date: 20171128
  Serious: No
  Sender: FDA-Public Use
  Company Number: US-PFIZER INC-2017394777

PATIENT

DRUGS (1)
  1. PREMARIN [Suspect]
     Active Substance: ESTROGENS, CONJUGATED
     Dosage: UNK

REACTIONS (11)
  - Headache [Unknown]
  - Malaise [Unknown]
  - Decreased appetite [Unknown]
  - Muscle spasms [Unknown]
  - Hypertension [Unknown]
  - Burning sensation [Unknown]
  - Nausea [Unknown]
  - Pelvic pain [Unknown]
  - Fatigue [Unknown]
  - Weight decreased [Unknown]
  - Hypersensitivity [Unknown]
